FAERS Safety Report 23906465 (Version 1)
Quarter: 2024Q2

REPORT INFORMATION
  Report Type: Spontaneous
  Country: US (occurrence: US)
  Receive Date: 20240528
  Receipt Date: 20240528
  Transmission Date: 20240716
  Serious: No
  Sender: FDA-Public Use
  Company Number: US-STRIDES ARCOLAB LIMITED-2024SP004164

PATIENT
  Age: 1 Decade
  Sex: Male

DRUGS (14)
  1. AMOXICILLIN [Suspect]
     Active Substance: AMOXICILLIN
     Indication: Campylobacter infection
     Dosage: UNK
     Route: 065
  2. AMOXICILLIN [Suspect]
     Active Substance: AMOXICILLIN
     Indication: Helicobacter infection
     Dosage: UNK, (TRIPLE DRUG THERAPY)
     Route: 065
  3. DOXYCYCLINE [Suspect]
     Active Substance: DOXYCYCLINE\DOXYCYCLINE HYCLATE
     Indication: Campylobacter infection
     Dosage: UNK, (TRIPLE DRUG THERAPY)
     Route: 065
  4. DOXYCYCLINE [Suspect]
     Active Substance: DOXYCYCLINE\DOXYCYCLINE HYCLATE
     Indication: Helicobacter infection
  5. AZITHROMYCIN [Concomitant]
     Active Substance: AZITHROMYCIN
     Indication: Campylobacter infection
     Dosage: UNK
     Route: 065
  6. AZITHROMYCIN [Concomitant]
     Active Substance: AZITHROMYCIN
     Indication: Arthritis reactive
  7. AZITHROMYCIN [Concomitant]
     Active Substance: AZITHROMYCIN
     Indication: Erythema nodosum
  8. NAPROSYN [Concomitant]
     Active Substance: NAPROXEN
     Indication: Campylobacter infection
     Dosage: UNK
     Route: 065
  9. NAPROSYN [Concomitant]
     Active Substance: NAPROXEN
     Indication: Arthritis reactive
  10. NAPROSYN [Concomitant]
     Active Substance: NAPROXEN
     Indication: Erythema nodosum
  11. ERTAPENEM [Concomitant]
     Active Substance: ERTAPENEM
     Indication: Campylobacter infection
     Dosage: UNK
     Route: 065
  12. ERTAPENEM [Concomitant]
     Active Substance: ERTAPENEM
     Indication: Helicobacter infection
  13. CIPROFLOXACIN [Concomitant]
     Active Substance: CIPROFLOXACIN
     Indication: Campylobacter infection
     Dosage: UNK
     Route: 065
  14. CIPROFLOXACIN [Concomitant]
     Active Substance: CIPROFLOXACIN
     Indication: Helicobacter infection
     Dosage: UNK, (TRIPLE DRUG THERAPY)
     Route: 065

REACTIONS (1)
  - Off label use [Unknown]
